FAERS Safety Report 18822096 (Version 1)
Quarter: 2021Q1

REPORT INFORMATION
  Report Type: Spontaneous
  Country: HN (occurrence: HN)
  Receive Date: 20210202
  Receipt Date: 20210202
  Transmission Date: 20210419
  Serious: Yes (Life-Threatening)
  Sender: FDA-Public Use
  Company Number: HN-DSJP-DSE-2021-102652AA

PATIENT
  Age: 38 Year
  Sex: Male

DRUGS (1)
  1. LIXIANA 60MG [Suspect]
     Active Substance: EDOXABAN TOSYLATE
     Indication: EMBOLISM
     Dosage: 60 MG, QD
     Route: 048
     Dates: start: 20201217, end: 20201229

REACTIONS (1)
  - Pulmonary embolism [Recovered/Resolved]

NARRATIVE: CASE EVENT DATE: 20201229
